FAERS Safety Report 9124879 (Version 1)
Quarter: 2013Q1

REPORT INFORMATION
  Report Type: Spontaneous
  Country: US (occurrence: US)
  Receive Date: 20130117
  Receipt Date: 20130117
  Transmission Date: 20140127
  Serious: No
  Sender: FDA-Public Use
  Company Number: US-PFIZER INC-2013016312

PATIENT
  Age: 69 Year
  Sex: Female
  Weight: 109 kg

DRUGS (8)
  1. MORPHINE SULFATE [Suspect]
     Dosage: UNK
  2. NEOSPORIN [Suspect]
     Dosage: UNK
  3. SILVADENE [Suspect]
     Dosage: UNK
  4. SPIRIVA [Suspect]
     Dosage: UNK
  5. BETADINE [Suspect]
     Dosage: UNK
  6. CIPRO [Suspect]
     Dosage: UNK
  7. GLYCERIN [Suspect]
     Dosage: UNK
  8. POLYSPORIN [Suspect]
     Dosage: UNK

REACTIONS (1)
  - Drug hypersensitivity [Unknown]
